FAERS Safety Report 5662310-X (Version None)
Quarter: 2008Q1

REPORT INFORMATION
  Report Type: 
  Country: None (occurrence: None)
  Receive Date: 20080312
  Receipt Date: 20080229
  Transmission Date: 20080703
  Serious: Yes (Hospitalization, Other)
  Sender: FDA-Public Use
  Company Number: US-PFIZER INC-2008019334

PATIENT
  Sex: Male
  Weight: 79.4 kg

DRUGS (2)
  1. CHANTIX [Suspect]
     Indication: SMOKING CESSATION THERAPY
  2. ALL OTHER THERAPEUTIC PRODUCTS [Suspect]
     Indication: BIPOLAR DISORDER

REACTIONS (3)
  - BIPOLAR DISORDER [None]
  - CONFUSIONAL STATE [None]
  - DEPRESSION [None]
